FAERS Safety Report 4551973-8 (Version None)
Quarter: 2005Q1

REPORT INFORMATION
  Report Type: 
  Country: None (occurrence: None)
  Receive Date: 20050112
  Receipt Date: 20050103
  Transmission Date: 20050727
  Serious: Yes (Hospitalization)
  Sender: FDA-Public Use
  Company Number: 2005-01-0068

PATIENT
  Age: 40 Year
  Sex: Male
  Weight: 94.3482 kg

DRUGS (7)
  1. PEG-INTRON [Suspect]
     Indication: HEPATITIS C
     Dosage: 1 MCG/KG QWK SUBCUTANEOU
     Route: 058
     Dates: start: 20041203, end: 20041224
  2. REBETOL [Suspect]
     Indication: HEPATITIS C
     Dosage: 800 MG QD ORAL
     Route: 048
     Dates: start: 20041203, end: 20041227
  3. CELEXA [Concomitant]
  4. PROTONIX [Concomitant]
  5. ESOPHAGEAL VARICES [Concomitant]
  6. NADOLOL [Concomitant]
  7. DURAGESIC [Concomitant]

REACTIONS (3)
  - CEREBROVASCULAR ACCIDENT [None]
  - PARAESTHESIA [None]
  - SENSORY DISTURBANCE [None]
